FAERS Safety Report 6984011-8 (Version None)
Quarter: 2010Q3

REPORT INFORMATION
  Report Type: 
  Country: None (occurrence: None)
  Receive Date: 20100915
  Receipt Date: 20100809
  Transmission Date: 20110219
  Serious: No
  Sender: FDA-Public Use
  Company Number: US-ALLERGAN-1010304US

PATIENT
  Age: 18 Year
  Sex: Male

DRUGS (1)
  1. AZELEX [Suspect]
     Indication: SKIN HYPERPIGMENTATION
     Dosage: UNK
     Route: 061
     Dates: start: 20100808

REACTIONS (1)
  - PIGMENTATION DISORDER [None]
